FAERS Safety Report 10886674 (Version 1)
Quarter: 2015Q1

REPORT INFORMATION
  Report Type: Spontaneous
  Country: US (occurrence: US)
  Receive Date: 20150304
  Receipt Date: 20150304
  Transmission Date: 20150721
  Serious: No
  Sender: FDA-Public Use
  Company Number: US-GLAXOSMITHKLINE-US2015015543

PATIENT
  Age: 70 Year
  Sex: Female

DRUGS (8)
  1. CITALOPRAM [Concomitant]
     Active Substance: CITALOPRAM HYDROBROMIDE
  2. ESTRADIOL. [Concomitant]
     Active Substance: ESTRADIOL
  3. ESTRACE [Concomitant]
     Active Substance: ESTRADIOL
  4. GLUCOSAMINE [Concomitant]
     Active Substance: GLUCOSAMINE
  5. VITAMIN D3 [Concomitant]
     Active Substance: CHOLECALCIFEROL
  6. HYDROCODONE [Concomitant]
     Active Substance: HYDROCODONE
  7. BREO ELLIPTA [Suspect]
     Active Substance: FLUTICASONE FUROATE\VILANTEROL TRIFENATATE
     Indication: DYSPNOEA
     Dosage: 1 PUFF(S), QD
     Route: 055
     Dates: start: 20150202
  8. ATENOLOL. [Concomitant]
     Active Substance: ATENOLOL

REACTIONS (3)
  - Poor quality sleep [Recovered/Resolved]
  - Cough [Recovered/Resolved]
  - Dizziness [Recovering/Resolving]

NARRATIVE: CASE EVENT DATE: 20150203
